FAERS Safety Report 5771336-7 (Version None)
Quarter: 2008Q2

REPORT INFORMATION
  Report Type: 
  Country: None (occurrence: None)
  Receive Date: 20080613
  Receipt Date: 20080603
  Transmission Date: 20081010
  Serious: Yes (Hospitalization)
  Sender: FDA-Public Use
  Company Number: US-JNJFOC-20080402287

PATIENT
  Age: 79 Year
  Sex: Female
  Weight: 75 kg

DRUGS (23)
  1. DORIBAX [Suspect]
     Indication: KLEBSIELLA INFECTION
     Route: 041
  2. ASPIRIN [Concomitant]
     Route: 065
  3. CLONIDINE [Concomitant]
     Route: 065
  4. FENTANYL [Concomitant]
     Route: 065
  5. FUROSEMIDE [Concomitant]
     Route: 065
  6. HYDROMORPHONE HCL [Concomitant]
     Route: 065
  7. LISINOPRIL [Concomitant]
     Route: 065
  8. MORPHINE [Concomitant]
     Route: 065
  9. NITROGLYCERIN [Concomitant]
     Route: 065
  10. TIGECYCLINE [Concomitant]
     Route: 065
  11. FRESH FROZEN PLASMA [Concomitant]
     Indication: THROMBOCYTOPENIA
  12. AMIODARONE HCL [Concomitant]
  13. DESMOPRESSIN ACETATE [Concomitant]
  14. DILTIAZEM [Concomitant]
  15. ENOXAPARIN SODIUM [Concomitant]
  16. HYDROCODONE BITARTRATE AND ACETAMINOPHEN [Concomitant]
  17. LANSOPRAZOLE [Concomitant]
  18. LEVOTYROXINE [Concomitant]
  19. METOCLOPRAMIDE [Concomitant]
  20. MORPHINE [Concomitant]
  21. PHYTONADIONE [Concomitant]
  22. PROPOFOL [Concomitant]
  23. PROPOXYPHENE HYDROCHLORIDE [Concomitant]

REACTIONS (1)
  - POST PROCEDURAL HAEMORRHAGE [None]
